FAERS Safety Report 13351754 (Version 1)
Quarter: 2017Q1

REPORT INFORMATION
  Report Type: Spontaneous
  Country: US (occurrence: US)
  Receive Date: 20170320
  Receipt Date: 20170320
  Transmission Date: 20170429
  Serious: Yes (Death, Disabling, Other)
  Sender: FDA-Public Use
  Company Number: US-TEVA-750309USA

PATIENT
  Age: 19 Year
  Sex: Male

DRUGS (4)
  1. VYTANSE [Concomitant]
  2. METOCLOPRAMIDE. [Suspect]
     Active Substance: METOCLOPRAMIDE
     Route: 042
  3. METOCLOPRAMIDE. [Suspect]
     Active Substance: METOCLOPRAMIDE
     Dosage: 40 MILLIGRAM DAILY;
     Route: 048
  4. DIAZEPAM. [Concomitant]
     Active Substance: DIAZEPAM

REACTIONS (15)
  - Gun shot wound [Fatal]
  - Nervous system disorder [Unknown]
  - Palpitations [Unknown]
  - Anxiety [Unknown]
  - Chest discomfort [Recovered/Resolved]
  - Restless legs syndrome [Unknown]
  - Dyspnoea [Unknown]
  - Disturbance in attention [Unknown]
  - Completed suicide [Fatal]
  - Chest pain [Recovered/Resolved]
  - Insomnia [Unknown]
  - Akathisia [Unknown]
  - Paraesthesia [Unknown]
  - Movement disorder [Unknown]
  - Dizziness [Unknown]

NARRATIVE: CASE EVENT DATE: 20150612
